FAERS Safety Report 10497727 (Version 6)
Quarter: 2015Q2

REPORT INFORMATION
  Report Type: Spontaneous
  Country: NL (occurrence: None)
  Receive Date: 20141002
  Receipt Date: 20150402
  Transmission Date: 20150821
  Serious: Yes (Hospitalization)
  Sender: FDA-Public Use
  Company Number: KAD201409-001174

PATIENT
  Age: 53 Year
  Sex: Male
  Weight: 76.2 kg

DRUGS (10)
  1. RIBAVIRIN. [Suspect]
     Active Substance: RIBAVIRIN
     Route: 048
     Dates: start: 20140731, end: 20140910
  2. RANITIDINE [Concomitant]
     Active Substance: RANITIDINE\RANITIDINE HYDROCHLORIDE
  3. CELLCEPT [Concomitant]
     Active Substance: MYCOPHENOLATE MOFETIL\MYCOPHENOLATE MOFETIL HYDROCHLORIDE
  4. PREDNISOLONE. [Concomitant]
     Active Substance: PREDNISOLONE
  5. LOSARTAN [Concomitant]
     Active Substance: LOSARTAN
  6. LANTUS [Concomitant]
     Active Substance: INSULIN GLARGINE
  7. SOFOSBUVIR/LEDIPASVIR [Suspect]
     Active Substance: LEDIPASVIR\SOFOSBUVIR
     Route: 048
     Dates: start: 20140731, end: 20141021
  8. NOVORAPID [Concomitant]
     Active Substance: INSULIN ASPART
  9. CICLOSPORIN [Concomitant]
     Active Substance: CYCLOSPORINE
  10. PARACETAMOL [Suspect]
     Active Substance: ACETAMINOPHEN

REACTIONS (9)
  - Blood urea increased [None]
  - Blood creatinine increased [None]
  - Malaise [None]
  - Nausea [None]
  - Aphasia [None]
  - Vomiting [None]
  - Fatigue [None]
  - Decreased appetite [None]
  - Dizziness [None]

NARRATIVE: CASE EVENT DATE: 20140922
